FAERS Safety Report 8488602-7 (Version None)
Quarter: 2012Q3

REPORT INFORMATION
  Report Type: 
  Country: None (occurrence: None)
  Receive Date: 20120705
  Receipt Date: 20120702
  Transmission Date: 20120928
  Serious: Yes (Other)
  Sender: FDA-Public Use
  Company Number: PHFR2010GB00703

PATIENT
  Sex: Female

DRUGS (1)
  1. CLOZARIL [Suspect]
     Indication: SCHIZOPHRENIA
     Route: 048
     Dates: start: 20030722

REACTIONS (4)
  - MEAN CELL VOLUME DECREASED [None]
  - HAEMOGLOBIN DECREASED [None]
  - UTERINE LEIOMYOMA [None]
  - MENORRHAGIA [None]
